FAERS Safety Report 12581956 (Version 1)
Quarter: 2016Q3

REPORT INFORMATION
  Report Type: Spontaneous
  Country: AT (occurrence: AT)
  Receive Date: 20160722
  Receipt Date: 20160722
  Transmission Date: 20161109
  Serious: Yes (Other)
  Sender: FDA-Public Use
  Company Number: AT-ASTRAZENECA-2016SE77767

PATIENT
  Sex: Female

DRUGS (2)
  1. ZOLADEX [Suspect]
     Active Substance: GOSERELIN ACETATE
     Dosage: 3.6MG UNKNOWN
     Route: 058
  2. AROMASIN [Concomitant]
     Active Substance: EXEMESTANE

REACTIONS (2)
  - Myalgia [Unknown]
  - Migraine [Unknown]
